FAERS Safety Report 17074436 (Version 1)
Quarter: 2019Q4

REPORT INFORMATION
  Report Type: Spontaneous
  Country: US (occurrence: US)
  Receive Date: 20191028
  Receipt Date: 20191028
  Transmission Date: 20200122
  Serious: Yes (Hospitalization)
  Sender: FDA-Public Use
  Company Number: None

PATIENT
  Age: 74 Year
  Sex: Female

DRUGS (9)
  1. CARTIA XT [Suspect]
     Active Substance: DILTIAZEM HYDROCHLORIDE
  2. FUROSEMIDE. [Concomitant]
     Active Substance: FUROSEMIDE
  3. SOTALOL HCL [Concomitant]
     Active Substance: SOTALOL
  4. LEVOTHYROXIN [Suspect]
     Active Substance: LEVOTHYROXINE
  5. XARELTO [Concomitant]
     Active Substance: RIVAROXABAN
  6. PREDNISONE. [Concomitant]
     Active Substance: PREDNISONE
  7. SOTALOL AF [Concomitant]
  8. LEVOFLOXACIN. [Concomitant]
     Active Substance: LEVOFLOXACIN
  9. VERZENIO [Suspect]
     Active Substance: ABEMACICLIB
     Indication: BREAST CANCER FEMALE
     Route: 048
     Dates: start: 20190824

REACTIONS (2)
  - Cardiac pacemaker insertion [None]
  - Lung operation [None]
